FAERS Safety Report 6041861-2 (Version None)
Quarter: 2009Q1

REPORT INFORMATION
  Report Type: 
  Country: None (occurrence: None)
  Receive Date: 20090116
  Receipt Date: 20090113
  Transmission Date: 20090719
  Serious: Yes (Death)
  Sender: FDA-Public Use
  Company Number: US-JNJFOC-20090102892

PATIENT
  Sex: Male
  Weight: 64 kg

DRUGS (12)
  1. DOXIL [Suspect]
     Indication: MULTIPLE MYELOMA
     Route: 042
  2. VELCADE [Suspect]
     Indication: MULTIPLE MYELOMA
     Route: 065
  3. REVLIMID [Suspect]
     Indication: MULTIPLE MYELOMA
     Route: 048
  4. DEXAMETHASONE TAB [Suspect]
     Indication: MULTIPLE MYELOMA
     Route: 048
  5. OXYCONTIN [Concomitant]
     Route: 065
  6. OXYCODONE [Concomitant]
     Indication: PAIN
     Route: 065
  7. FENTANYL [Concomitant]
     Route: 062
  8. CIPROFLOXACIN HCL [Concomitant]
     Indication: ESCHERICHIA INFECTION
     Route: 048
  9. LOVENOX [Concomitant]
     Route: 058
  10. LIPITOR [Concomitant]
     Route: 065
  11. PROZAC [Concomitant]
     Route: 065
  12. PEPCID AC [Concomitant]
     Route: 065

REACTIONS (4)
  - BACTERAEMIA [None]
  - MENINGITIS [None]
  - MULTIPLE MYELOMA [None]
  - PNEUMONIA STREPTOCOCCAL [None]
